FAERS Safety Report 25652947 (Version 2)
Quarter: 2025Q4

REPORT INFORMATION
  Report Type: Report from Study
  Country: US (occurrence: US)
  Receive Date: 20250807
  Receipt Date: 20251024
  Transmission Date: 20260118
  Serious: Yes (Death, Other)
  Sender: ACADIA PHARMACEUTICALS
  Company Number: US-ACADIA PHARMACEUTICALS INC.-ACA-2025-PIM-008877

PATIENT
  Age: 85 Year
  Sex: Female

DRUGS (1)
  1. NUPLAZID [Suspect]
     Active Substance: PIMAVANSERIN TARTRATE
     Indication: Essential tremor
     Dosage: 34 MILLIGRAM, QD (QPM) (EVERY DAY EVENING)
     Route: 048
     Dates: start: 202506

REACTIONS (5)
  - Death [Fatal]
  - Joint swelling [Unknown]
  - Peripheral swelling [Unknown]
  - Swollen tongue [Unknown]
  - Product use in unapproved indication [Unknown]

NARRATIVE: CASE EVENT DATE: 20250601
